FAERS Safety Report 10339483 (Version 2)
Quarter: 2014Q3

REPORT INFORMATION
  Report Type: Report from Study
  Country: JP (occurrence: JP)
  Receive Date: 20140724
  Receipt Date: 20140819
  Transmission Date: 20150326
  Serious: Yes (Other)
  Sender: FDA-Public Use
  Company Number: JP-SHIRE-JP201404153

PATIENT
  Age: 13 Year
  Sex: Male

DRUGS (3)
  1. ANTIHISTAMINES [Concomitant]
     Active Substance: ANTIHISTAMINES NOS
     Indication: PREMEDICATION
     Dosage: UNK, UNKNOWN (ADMINISTERED PRIOR TO INFUSION)
     Route: 065
  2. IDURSULFASE [Suspect]
     Active Substance: IDURSULFASE
     Indication: MUCOPOLYSACCHARIDOSIS II
     Dosage: UNK, UNKNOWN
     Route: 041
  3. CORTICOSTEROIDS [Concomitant]
     Active Substance: CORTICOSTEROID NOS
     Indication: PREMEDICATION
     Dosage: UNK, UNKNOWN (ADMINISTERED PRIOR TO INFUSION)
     Route: 065

REACTIONS (4)
  - Cerebral atrophy [Unknown]
  - Retinal degeneration [Unknown]
  - Anaphylactic reaction [Unknown]
  - Infusion related reaction [Unknown]
